FAERS Safety Report 5102765-2 (Version None)
Quarter: 2006Q3

REPORT INFORMATION
  Report Type: 
  Country: None (occurrence: None)
  Receive Date: 20060907
  Receipt Date: 20060904
  Transmission Date: 20061208
  Serious: Yes (Disabling)
  Sender: FDA-Public Use
  Company Number: OSCN-NO-0608L-0243

PATIENT
  Age: 57 Year
  Sex: Male

DRUGS (6)
  1. OMNISCAN [Suspect]
     Indication: DRUG USE FOR UNKNOWN INDICATION
     Dosage: SINGLE DOSE
  2. INSULIN (INSULIN) [Concomitant]
  3. MYCOPHENOLATE MOFETIL [Concomitant]
  4. AMPHOTERICINE B, LIPOSOME (LIPOSOMAL AMPHOTERICINE B) [Concomitant]
  5. ACYCLOVIR [Concomitant]
  6. BACTRIM [Concomitant]

REACTIONS (11)
  - ASPERGILLOSIS [None]
  - DRUG RESISTANCE [None]
  - GLOMERULONEPHRITIS MEMBRANOPROLIFERATIVE [None]
  - HAEMODIALYSIS [None]
  - INFECTION IN AN IMMUNOCOMPROMISED HOST [None]
  - NEPHROGENIC FIBROSING DERMOPATHY [None]
  - OEDEMA PERIPHERAL [None]
  - PAIN IN EXTREMITY [None]
  - PULMONARY MYCOSIS [None]
  - RENAL FAILURE CHRONIC [None]
  - SKIN DISCOLOURATION [None]
